FAERS Safety Report 5240757-3 (Version None)
Quarter: 2007Q1

REPORT INFORMATION
  Report Type: 
  Country: None (occurrence: None)
  Receive Date: 20061208
  Receipt Date: 20050520
  Transmission Date: 20070707
  Serious: Yes (Other)
  Sender: FDA-Public Use
  Company Number: 2005UW04659

PATIENT
  Age: 56 Year
  Sex: Male

DRUGS (3)
  1. CRESTOR [Suspect]
  2. CRESTOR [Suspect]
     Dosage: 10 MG A DAY FOR A WEEK AND THEN OFF FOR A WEEK
  3. TAGAMET [Suspect]

REACTIONS (1)
  - GYNAECOMASTIA [None]
